FAERS Safety Report 6547395-0 (Version None)
Quarter: 2010Q1

REPORT INFORMATION
  Report Type: 
  Country: None (occurrence: None)
  Receive Date: 20100122
  Receipt Date: 20100113
  Transmission Date: 20100710
  Serious: Yes (Other)
  Sender: FDA-Public Use
  Company Number: PHHY2009DE25699

PATIENT
  Age: 67 Year
  Sex: Female

DRUGS (4)
  1. DIOVAN HCT [Suspect]
     Indication: HYPERTENSION
     Dosage: 1 DF, QD
     Route: 048
     Dates: start: 20090501, end: 20090623
  2. DIOVAN HCT [Suspect]
     Dosage: 0.5 DF, BID
     Route: 048
     Dates: start: 20090624
  3. LAIF [Concomitant]
     Dosage: 900 MG, UNK
  4. RASILEZ (ALISKIREN) [Concomitant]
     Indication: HYPERTENSION
     Dosage: 1 DF, BID
     Route: 048
     Dates: start: 20090101

REACTIONS (5)
  - ABDOMINAL PAIN [None]
  - ALOPECIA [None]
  - BLOOD PRESSURE DIASTOLIC INCREASED [None]
  - BLOOD PRESSURE INADEQUATELY CONTROLLED [None]
  - CONDITION AGGRAVATED [None]
